FAERS Safety Report 19511530 (Version 5)
Quarter: 2021Q3

REPORT INFORMATION
  Report Type: Report from Study
  Country: US (occurrence: US)
  Receive Date: 20210709
  Receipt Date: 20210830
  Transmission Date: 20211014
  Serious: No
  Sender: FDA-Public Use
  Company Number: NVSC2021US154496

PATIENT
  Sex: Male

DRUGS (2)
  1. ENTRESTO [Suspect]
     Active Substance: SACUBITRIL\VALSARTAN
     Indication: PRODUCT USED FOR UNKNOWN INDICATION
     Dosage: UNK
     Route: 065
  2. ENTRESTO [Suspect]
     Active Substance: SACUBITRIL\VALSARTAN
     Dosage: UNK
     Route: 065

REACTIONS (8)
  - Pain [Unknown]
  - Cough [Unknown]
  - Productive cough [Unknown]
  - Peripheral swelling [Unknown]
  - Chest discomfort [Unknown]
  - Dyspnoea [Recovering/Resolving]
  - Heart rate increased [Unknown]
  - Product availability issue [Unknown]
